FAERS Safety Report 19294916 (Version 1)
Quarter: 2021Q2

REPORT INFORMATION
  Report Type: Spontaneous
  Country: IT (occurrence: IT)
  Receive Date: 20210524
  Receipt Date: 20210524
  Transmission Date: 20210717
  Serious: Yes (Other)
  Sender: FDA-Public Use
  Company Number: IT-TEVA-2021-IT-1913849

PATIENT
  Age: 78 Year
  Sex: Female

DRUGS (1)
  1. CLARITHROMYCIN. [Suspect]
     Active Substance: CLARITHROMYCIN
     Indication: ANTIBIOTIC THERAPY
     Dosage: 1 DF
     Route: 048
     Dates: start: 20210101, end: 20210101

REACTIONS (1)
  - Tongue oedema [Recovering/Resolving]

NARRATIVE: CASE EVENT DATE: 20210101
